FAERS Safety Report 6921739-X (Version None)
Quarter: 2010Q3

REPORT INFORMATION
  Report Type: 
  Country: None (occurrence: None)
  Receive Date: 20100805
  Receipt Date: 20100323
  Transmission Date: 20110219
  Serious: Yes (Other)
  Sender: FDA-Public Use
  Company Number: 2010037913

PATIENT
  Age: 59 Year
  Sex: Male
  Weight: 62.6 kg

DRUGS (2)
  1. CAMPTOSAR [Suspect]
     Indication: OESOPHAGEAL CARCINOMA
     Dosage: INJECTION
  2. ERBITUX [Concomitant]

REACTIONS (3)
  - BACK PAIN [None]
  - BLOOD AMYLASE INCREASED [None]
  - LIPASE INCREASED [None]
